FAERS Safety Report 18341182 (Version 3)
Quarter: 2020Q4

REPORT INFORMATION
  Report Type: Spontaneous
  Country: US (occurrence: US)
  Receive Date: 20201003
  Receipt Date: 20201120
  Transmission Date: 20210113
  Serious: Yes (Other)
  Sender: FDA-Public Use
  Company Number: NVSC2020US263083

PATIENT
  Age: 69 Year
  Sex: Male
  Weight: 112.1 kg

DRUGS (17)
  1. ASAPRIN [Concomitant]
     Active Substance: ASPIRIN
     Indication: ANTICOAGULANT THERAPY
     Dosage: 81 MG, QD
     Route: 048
     Dates: start: 20200619, end: 20200622
  2. DIPHENE [Concomitant]
     Indication: PROPHYLAXIS
     Dosage: 12.5 MG X1
     Route: 048
     Dates: start: 20200608, end: 20200608
  3. CLARITIN [Concomitant]
     Active Substance: LORATADINE
     Indication: HYPERSENSITIVITY
     Dosage: 5 MG, BID
     Route: 048
     Dates: start: 20200613, end: 20200622
  4. XARELTO [Concomitant]
     Active Substance: RIVAROXABAN
     Indication: ANTICOAGULANT THERAPY
     Dosage: 15 MG, QD
     Route: 048
     Dates: start: 20191208
  5. ZOFRAN [Concomitant]
     Active Substance: ONDANSETRON HYDROCHLORIDE
     Indication: ANTIEMETIC SUPPORTIVE CARE
     Dosage: 8 MG, Q8H (PRN)
     Route: 042
     Dates: start: 20200609, end: 20200609
  6. ZOVIRAX [Concomitant]
     Active Substance: ACYCLOVIR
     Indication: ANTIVIRAL PROPHYLAXIS
     Dosage: 800 MG, BID
     Route: 048
     Dates: start: 20200604, end: 20200716
  7. K-DUR [Concomitant]
     Active Substance: POTASSIUM CHLORIDE
     Indication: ELECTROLYTE SUBSTITUTION THERAPY
     Dosage: 20 MEQ QD PRN
     Route: 048
     Dates: start: 20200608, end: 20200621
  8. ATIVAN [Concomitant]
     Active Substance: LORAZEPAM
     Indication: INSOMNIA
     Dosage: 0.5 MG, PRN
     Route: 048
     Dates: start: 20200615, end: 20200615
  9. LOVENOX [Concomitant]
     Active Substance: ENOXAPARIN SODIUM
     Indication: ANTICOAGULANT THERAPY
     Dosage: 40 MG, QD
     Route: 065
     Dates: start: 20200618, end: 20200621
  10. TENORMIN [Concomitant]
     Active Substance: ATENOLOL
     Indication: HYPERTENSION
     Dosage: 12.5 MG, QD
     Route: 048
  11. DIFLUCAN [Concomitant]
     Active Substance: FLUCONAZOLE
     Indication: ANTIFUNGAL PROPHYLAXIS
     Dosage: 400 MG, QD
     Route: 048
     Dates: start: 20200608, end: 20200624
  12. FLONASE [Concomitant]
     Active Substance: FLUTICASONE PROPIONATE
     Indication: HYPERSENSITIVITY
     Dosage: 50 MCG QD PRN
     Route: 045
     Dates: start: 20200608, end: 20200622
  13. AFRIN [Concomitant]
     Active Substance: OXYMETAZOLINE
     Indication: HYPERSENSITIVITY
     Dosage: 2 SPRAYS/EACH NARE
     Route: 055
     Dates: start: 20200612, end: 20200612
  14. KYMRIAH [Suspect]
     Active Substance: TISAGENLECLEUCEL
     Indication: DIFFUSE LARGE B-CELL LYMPHOMA REFRACTORY
     Dosage: 33 ML, ONCE/SINGLE (3 1E9 TOTAL VIABLE CELLS)
     Route: 042
     Dates: start: 20200608, end: 20200608
  15. PENTAMIDINE [Concomitant]
     Active Substance: PENTAMIDINE
     Indication: ANTIFUNGAL PROPHYLAXIS
     Dosage: 300 NGX1
     Route: 042
     Dates: start: 20200606, end: 20200606
  16. VANTIN [Concomitant]
     Active Substance: CEFPODOXIME PROXETIL
     Indication: ANTIBIOTIC PROPHYLAXIS
     Dosage: 200 MG, BID
     Route: 048
     Dates: start: 20200608, end: 20200624
  17. KEPPRA [Concomitant]
     Active Substance: LEVETIRACETAM
     Indication: SEIZURE PROPHYLAXIS
     Dosage: 750 MG, BID
     Route: 048
     Dates: start: 20200608, end: 20200716

REACTIONS (8)
  - Aplasia [Unknown]
  - Pupils unequal [Recovered/Resolved]
  - Feeling abnormal [Recovered/Resolved]
  - Sleep apnoea syndrome [Unknown]
  - Confusional state [Recovered/Resolved]
  - Hypoxia [Recovered/Resolved]
  - Cytokine release syndrome [Recovered/Resolved]
  - Pyrexia [Recovered/Resolved]

NARRATIVE: CASE EVENT DATE: 20200608
